FAERS Safety Report 5501994-3 (Version None)
Quarter: 2007Q4

REPORT INFORMATION
  Report Type: 
  Country: None (occurrence: None)
  Receive Date: 20071030
  Receipt Date: 20071023
  Transmission Date: 20080405
  Serious: Yes (Hospitalization, Congenital Anomaly)
  Sender: FDA-Public Use
  Company Number: B0414538A

PATIENT
  Sex: Female
  Weight: 3.4 kg

DRUGS (20)
  1. PAXIL [Suspect]
     Indication: DYSTHYMIC DISORDER
     Dosage: 10MG SEE DOSAGE TEXT
     Dates: start: 20040216
  2. NORITREN [Concomitant]
     Indication: DYSTHYMIC DISORDER
     Dosage: 150MG PER DAY
     Dates: start: 20041216
  3. LEVOTOMIN [Concomitant]
     Indication: DYSTHYMIC DISORDER
     Dosage: 100MG PER DAY
     Dates: start: 20040216, end: 20050410
  4. SOLANAX [Concomitant]
     Indication: DYSTHYMIC DISORDER
     Dosage: 2.4MG PER DAY
     Dates: start: 20040109
  5. SEPAZON [Concomitant]
     Indication: DYSTHYMIC DISORDER
     Dosage: 3MG PER DAY
     Dates: start: 20041007
  6. SILECE [Concomitant]
     Indication: DYSTHYMIC DISORDER
     Dates: end: 20050704
  7. HALCION [Concomitant]
     Indication: DYSTHYMIC DISORDER
     Dosage: .25MG PER DAY
     Dates: start: 20040630
  8. VEGETAMIN A [Concomitant]
     Indication: DYSTHYMIC DISORDER
     Dates: end: 20050704
  9. PROMETHAZINE [Concomitant]
     Indication: DYSTHYMIC DISORDER
  10. LORAZEPAM [Concomitant]
     Indication: DYSTHYMIC DISORDER
  11. FAMOTIDINE [Concomitant]
     Indication: DYSTHYMIC DISORDER
     Dosage: 20MG PER DAY
     Dates: start: 20040109
  12. PROMETHAZINE [Concomitant]
     Dates: end: 20040623
  13. LORAZEPAM [Concomitant]
     Dosage: 2MG PER DAY
     Dates: start: 20041216
  14. FAMOTIDINE [Concomitant]
     Dosage: 20MG PER DAY
     Dates: start: 20040109
  15. LEVOTOMIN [Concomitant]
     Dosage: 50MG PER DAY
     Dates: start: 20050426, end: 20051024
  16. LEXOTAN [Concomitant]
     Dosage: 6MG PER DAY
     Dates: start: 20051025
  17. SILECE [Concomitant]
     Dosage: 1MG PER DAY
     Dates: start: 20050705
  18. VEGETAMIN A [Concomitant]
     Dosage: 1U PER DAY
     Dates: start: 20050705
  19. PROMETHAZINE [Concomitant]
     Dosage: 25MG PER DAY
     Dates: start: 20040624
  20. LORAZEPAM [Concomitant]
     Dosage: 2.5MG PER DAY
     Dates: end: 20050704

REACTIONS (5)
  - CAESAREAN SECTION [None]
  - CARDIAC HYPERTROPHY [None]
  - CONGENITAL ANOMALY [None]
  - DRUG EXPOSURE DURING PREGNANCY [None]
  - VENTRICULAR SEPTAL DEFECT [None]
